FAERS Safety Report 15737049 (Version 7)
Quarter: 2019Q3

REPORT INFORMATION
  Report Type: Report from Study
  Country: US (occurrence: US)
  Receive Date: 20181218
  Receipt Date: 20190715
  Transmission Date: 20191004
  Serious: Yes (Hospitalization, Other)
  Sender: FDA-Public Use
  Company Number: US-ACTELION-A-NJ2018-182628

PATIENT
  Age: 51 Year
  Sex: Female
  Weight: 50.34 kg

DRUGS (7)
  1. OPSUMIT [Suspect]
     Active Substance: MACITENTAN
     Indication: PULMONARY ARTERIAL HYPERTENSION
     Dosage: 10 MG, QD
     Route: 048
  2. ORENITRAM [Suspect]
     Active Substance: TREPROSTINIL
     Indication: PRODUCT USED FOR UNKNOWN INDICATION
     Route: 065
  3. VELETRI [Suspect]
     Active Substance: EPOPROSTENOL
     Indication: PULMONARY ARTERIAL HYPERTENSION
     Dosage: 20 NG/KG, PER MIN
     Route: 042
  4. VELETRI [Suspect]
     Active Substance: EPOPROSTENOL
     Dosage: 12 NG/KG, PER MIN
     Route: 042
  5. VELETRI [Suspect]
     Active Substance: EPOPROSTENOL
     Dosage: 10 NG/KG, PER MIN
     Route: 042
  6. XARELTO [Concomitant]
     Active Substance: RIVAROXABAN
  7. REVATIO [Concomitant]
     Active Substance: SILDENAFIL CITRATE

REACTIONS (32)
  - Swelling face [Unknown]
  - Gastrointestinal haemorrhage [Unknown]
  - Pulmonary arterial hypertension [Unknown]
  - Diarrhoea [Unknown]
  - Clumsiness [Unknown]
  - Cough [Unknown]
  - Nausea [Unknown]
  - Fatigue [Unknown]
  - Catheter site pruritus [Unknown]
  - Administration site pruritus [Unknown]
  - Transfusion [Unknown]
  - Tachycardia [Unknown]
  - Hypotension [Unknown]
  - Pyrexia [Unknown]
  - Infection [Unknown]
  - Lethargy [Unknown]
  - Pain in jaw [Not Recovered/Not Resolved]
  - Muscle spasms [Not Recovered/Not Resolved]
  - Catheter site erythema [Unknown]
  - Catheter site rash [Unknown]
  - Administration site erythema [Unknown]
  - Anxiety [Unknown]
  - Weight increased [Unknown]
  - Oedema peripheral [Unknown]
  - Rash [Unknown]
  - Blood pressure increased [Unknown]
  - Rash papular [Unknown]
  - Extra dose administered [Unknown]
  - Vomiting [Unknown]
  - Pruritus generalised [Unknown]
  - Administration site discolouration [Unknown]
  - Administration site dryness [Unknown]

NARRATIVE: CASE EVENT DATE: 20190701
